FAERS Safety Report 15881106 (Version 1)
Quarter: 2019Q1

REPORT INFORMATION
  Report Type: Spontaneous
  Country: US (occurrence: US)
  Receive Date: 20190128
  Receipt Date: 20190128
  Transmission Date: 20190417
  Serious: Yes (Death, Hospitalization)
  Sender: FDA-Public Use
  Company Number: US-DENDREON PHARMACEUTICALS LLC-2019DEN000018

PATIENT

DRUGS (4)
  1. OXYCONTIN [Concomitant]
     Active Substance: OXYCODONE HYDROCHLORIDE
     Indication: BONE PAIN
  2. PROVENGE [Suspect]
     Active Substance: SIPULEUCEL-T
     Indication: PROSTATE CANCER STAGE IV
     Dosage: DOSE #1
     Route: 042
     Dates: start: 20190110, end: 20190110
  3. NEURONTIN [Concomitant]
     Active Substance: GABAPENTIN
     Indication: BONE PAIN
  4. OXY.IR [Concomitant]
     Indication: BONE PAIN

REACTIONS (1)
  - Subdural haematoma [Fatal]

NARRATIVE: CASE EVENT DATE: 201901
